FAERS Safety Report 19357250 (Version 3)
Quarter: 2021Q4

REPORT INFORMATION
  Report Type: Report from Study
  Country: CA (occurrence: CA)
  Receive Date: 20210602
  Receipt Date: 20211021
  Transmission Date: 20220303
  Serious: Yes (Other)
  Sender: FDA-Public Use
  Company Number: CA-BRISTOL-MYERS SQUIBB COMPANY-BMS-2021-052930

PATIENT
  Age: 59 Year
  Sex: Female

DRUGS (1)
  1. NIVOLUMAB [Suspect]
     Active Substance: NIVOLUMAB
     Indication: Gastric cancer
     Dosage: 240 MILLIGRAM, Q2WK
     Route: 042
     Dates: start: 20210427

REACTIONS (7)
  - Fatigue [Unknown]
  - Anxiety [Unknown]
  - Decreased appetite [Recovering/Resolving]
  - Asthenia [Unknown]
  - Nausea [Unknown]
  - Depression [Unknown]
  - Pain [Unknown]

NARRATIVE: CASE EVENT DATE: 20211013
